FAERS Safety Report 23958771 (Version 1)
Quarter: 2024Q2

REPORT INFORMATION
  Report Type: Report from Study
  Country: US (occurrence: US)
  Receive Date: 20240610
  Receipt Date: 20240610
  Transmission Date: 20240716
  Serious: Yes (Other)
  Sender: FDA-Public Use
  Company Number: US-ABBVIE-5792013

PATIENT
  Age: 65 Year
  Sex: Female
  Weight: 88 kg

DRUGS (5)
  1. RINVOQ [Suspect]
     Active Substance: UPADACITINIB
     Indication: Rheumatoid arthritis
     Dosage: STRENGTH - 15 MILLIGRAMS
     Route: 048
     Dates: start: 2019, end: 202310
  2. RINVOQ [Suspect]
     Active Substance: UPADACITINIB
     Indication: Rheumatoid arthritis
     Dosage: STRENGTH - 15 MILLIGRAMS
     Route: 048
  3. SYNTHROID [Concomitant]
     Active Substance: LEVOTHYROXINE SODIUM
     Indication: Hypothyroidism
  4. WELLBUTRIN [Concomitant]
     Active Substance: BUPROPION HYDROCHLORIDE
     Indication: Depression
  5. CYMBALTA [Concomitant]
     Active Substance: DULOXETINE HYDROCHLORIDE
     Indication: Rheumatoid arthritis

REACTIONS (3)
  - Biliary colic [Recovered/Resolved]
  - Incisional hernia [Recovered/Resolved]
  - Diastasis recti abdominis [Recovered/Resolved]

NARRATIVE: CASE EVENT DATE: 20210601
